FAERS Safety Report 6280462-8 (Version None)
Quarter: 2009Q3

REPORT INFORMATION
  Report Type: 
  Country: None (occurrence: None)
  Receive Date: 20090724
  Receipt Date: 20080616
  Transmission Date: 20100115
  Serious: No
  Sender: FDA-Public Use
  Company Number: A0734184A

PATIENT
  Age: 65 Year
  Sex: Male
  Weight: 88.6 kg

DRUGS (3)
  1. AVANDIA [Suspect]
     Indication: DRUG USE FOR UNKNOWN INDICATION
     Route: 048
     Dates: end: 20080401
  2. METFORMIN HCL [Suspect]
     Indication: DRUG USE FOR UNKNOWN INDICATION
     Dates: end: 20080401
  3. REPAGLINIDE [Concomitant]
     Dates: start: 20080401

REACTIONS (2)
  - BLOOD CREATININE INCREASED [None]
  - HYPERGLYCAEMIA [None]
